FAERS Safety Report 11582862 (Version 2)
Quarter: 2015Q4

REPORT INFORMATION
  Report Type: Report from Study
  Country: CA (occurrence: CA)
  Receive Date: 20151001
  Receipt Date: 20151019
  Transmission Date: 20160304
  Serious: Yes (Other)
  Sender: FDA-Public Use
  Company Number: PHHY2015CA117393

PATIENT
  Sex: Female

DRUGS (1)
  1. ACLASTA [Suspect]
     Active Substance: ZOLEDRONIC ACID
     Indication: OSTEOPOROSIS
     Dosage: 5 MG, UNK
     Route: 042
     Dates: start: 20140924

REACTIONS (4)
  - Fall [Recovered/Resolved]
  - Wrist fracture [Recovered/Resolved]
  - Drug ineffective [Unknown]
  - Spinal fracture [Recovered/Resolved]
